FAERS Safety Report 22222366 (Version 1)
Quarter: 2023Q2

REPORT INFORMATION
  Report Type: Spontaneous
  Country: CN (occurrence: CN)
  Receive Date: 20230418
  Receipt Date: 20230418
  Transmission Date: 20230722
  Serious: Yes (Other)
  Sender: FDA-Public Use
  Company Number: CN-SA-SAC20230417000388

PATIENT
  Age: 62 Year
  Sex: Male

DRUGS (4)
  1. ELOXATIN [Suspect]
     Active Substance: OXALIPLATIN
     Indication: Chemotherapy
     Dosage: 230 MG, TOTAL
     Route: 041
     Dates: start: 20230329, end: 20230329
  2. DURVALUMAB [Suspect]
     Active Substance: DURVALUMAB
     Dosage: 1000 MG, TOTAL
     Route: 041
     Dates: start: 20230329, end: 20230329
  3. SODIUM CHLORIDE [Concomitant]
     Active Substance: SODIUM CHLORIDE
     Dosage: 100 ML, TOTAL
     Route: 041
     Dates: start: 20230329, end: 20230329
  4. DEXTROSE [Concomitant]
     Active Substance: DEXTROSE\DEXTROSE MONOHYDRATE
     Dosage: 500 ML, TOTAL
     Route: 041
     Dates: start: 20230329, end: 20230329

REACTIONS (3)
  - Syncope [Recovering/Resolving]
  - Pallor [Recovering/Resolving]
  - Chest discomfort [Recovering/Resolving]

NARRATIVE: CASE EVENT DATE: 20230329
